FAERS Safety Report 4383655-X (Version None)
Quarter: 2004Q2

REPORT INFORMATION
  Report Type: 
  Country: None (occurrence: None)
  Receive Date: 20040623
  Receipt Date: 20040216
  Transmission Date: 20050107
  Serious: Yes (Other)
  Sender: FDA-Public Use
  Company Number: CA-GLAXOSMITHKLINE-B0323346A

PATIENT
  Age: 50 Year
  Sex: Male

DRUGS (1)
  1. TOPOTECAN [Suspect]
     Dosage: 1.5MGM2 CYCLIC
     Route: 042

REACTIONS (2)
  - CONDITION AGGRAVATED [None]
  - SUBDURAL HAEMATOMA [None]
